FAERS Safety Report 7867192-3 (Version None)
Quarter: 2011Q4

REPORT INFORMATION
  Report Type: 
  Country: None (occurrence: None)
  Receive Date: 20111028
  Receipt Date: 20111025
  Transmission Date: 20120403
  Serious: Yes (Other)
  Sender: FDA-Public Use
  Company Number: US-GLAXOSMITHKLINE-A0950455A

PATIENT
  Age: 73 Year
  Sex: Female

DRUGS (4)
  1. ADVAIR DISKUS 100/50 [Suspect]
     Indication: ASTHMA
     Dosage: 1PUFF TWICE PER DAY
     Route: 055
  2. UNSPECIFIED MEDICATIONS [Concomitant]
  3. ADVAIR DISKUS 100/50 [Suspect]
     Dosage: 1PUFF TWICE PER DAY
     Route: 055
     Dates: start: 20110523, end: 20110523
  4. ALBUTEROL SULFATE [Concomitant]

REACTIONS (6)
  - TREATMENT NONCOMPLIANCE [None]
  - FEELING ABNORMAL [None]
  - DIZZINESS [None]
  - HEART RATE INCREASED [None]
  - ASTHMA [None]
  - ANXIETY [None]
